FAERS Safety Report 10602471 (Version 3)
Quarter: 2015Q2

REPORT INFORMATION
  Report Type: Spontaneous
  Country: US (occurrence: US)
  Receive Date: 20141124
  Receipt Date: 20150409
  Transmission Date: 20150821
  Serious: Yes (Death)
  Sender: FDA-Public Use
  Company Number: US-CELGENE-USA-2014113560

PATIENT
  Age: 57 Year
  Sex: Male

DRUGS (9)
  1. METHADONE [Concomitant]
     Active Substance: METHADONE HYDROCHLORIDE
     Indication: PAIN
     Dosage: 1-2 10MG
     Route: 048
     Dates: start: 20131010, end: 20140505
  2. DILAUDID [Concomitant]
     Active Substance: HYDROMORPHONE HYDROCHLORIDE
     Indication: PAIN
     Dosage: 1-2 2MG
     Route: 048
     Dates: start: 20140501, end: 20140706
  3. EMEND TRIFOLD [Concomitant]
     Indication: NAUSEA
     Dosage: 80 AND 125MG
     Route: 065
     Dates: start: 20131021, end: 20140310
  4. GEMCITABINE [Concomitant]
     Active Substance: GEMCITABINE\GEMCITABINE HYDROCHLORIDE
     Indication: NEOPLASM MALIGNANT
     Route: 065
     Dates: start: 20140303, end: 20140317
  5. KYTRIL [Concomitant]
     Active Substance: GRANISETRON HYDROCHLORIDE
     Indication: NAUSEA
     Route: 065
     Dates: start: 20140303, end: 20140317
  6. HYDROCODONE [Concomitant]
     Active Substance: HYDROCODONE
     Indication: PAIN
     Dosage: 1-2 2MG
     Route: 048
     Dates: start: 20130925, end: 20140421
  7. PHENERGAN [Concomitant]
     Active Substance: PROMETHAZINE HYDROCHLORIDE
     Indication: NAUSEA
     Route: 065
     Dates: start: 20140505
  8. ABRAXANE [Suspect]
     Active Substance: PACLITAXEL
     Indication: HEPATOCELLULAR CARCINOMA
     Dosage: 263 MILLIGRAM
     Route: 041
     Dates: start: 20140303, end: 20140317
  9. DECADRON [Concomitant]
     Active Substance: DEXAMETHASONE
     Indication: CHEMOTHERAPY
     Dosage: 100 MILLIGRAM
     Route: 065
     Dates: start: 20140303, end: 20140317

REACTIONS (1)
  - Hepatocellular carcinoma [Fatal]

NARRATIVE: CASE EVENT DATE: 20140706
